FAERS Safety Report 5389515-X (Version None)
Quarter: 2007Q3

REPORT INFORMATION
  Report Type: 
  Country: None (occurrence: None)
  Receive Date: 20070717
  Receipt Date: 20070709
  Transmission Date: 20080115
  Serious: Yes (Life-Threatening)
  Sender: FDA-Public Use
  Company Number: JP-SANOFI-SYNTHELABO-A01200705698

PATIENT
  Sex: Male
  Weight: 53 kg

DRUGS (13)
  1. DORNER [Concomitant]
     Indication: CEREBRAL INFARCTION
     Route: 065
     Dates: start: 20010214, end: 20070517
  2. COMELIAN [Concomitant]
     Indication: CEREBRAL INFARCTION
     Route: 065
     Dates: start: 20010214, end: 20070517
  3. GASMOTIN [Concomitant]
     Indication: DRUG USE FOR UNKNOWN INDICATION
     Route: 048
     Dates: start: 20061121
  4. VASOLAN [Concomitant]
     Indication: DRUG USE FOR UNKNOWN INDICATION
     Route: 048
     Dates: start: 20051014
  5. CLEANAL [Concomitant]
     Indication: DRUG USE FOR UNKNOWN INDICATION
     Route: 048
     Dates: start: 20060502
  6. THYRADIN S [Concomitant]
     Indication: DRUG USE FOR UNKNOWN INDICATION
     Route: 048
     Dates: start: 20060626
  7. HARNAL [Concomitant]
     Indication: DRUG USE FOR UNKNOWN INDICATION
     Route: 048
     Dates: start: 20070316
  8. BUP-4 [Concomitant]
     Indication: DRUG USE FOR UNKNOWN INDICATION
     Route: 048
     Dates: start: 20060623
  9. MYSLEE [Concomitant]
     Indication: DRUG USE FOR UNKNOWN INDICATION
     Route: 048
     Dates: start: 20060526
  10. OMEPRAL [Concomitant]
     Indication: DRUG USE FOR UNKNOWN INDICATION
     Route: 048
     Dates: start: 20061027
  11. CALBOCK [Concomitant]
     Indication: DRUG USE FOR UNKNOWN INDICATION
     Route: 048
     Dates: start: 20050603
  12. PLAVIX [Suspect]
     Indication: CEREBRAL INFARCTION
     Route: 065
     Dates: start: 20070518, end: 20070525
  13. PLETAL [Concomitant]
     Indication: DRUG USE FOR UNKNOWN INDICATION
     Route: 048
     Dates: start: 20050409

REACTIONS (11)
  - ALTERED STATE OF CONSCIOUSNESS [None]
  - CHILLS [None]
  - CHROMATURIA [None]
  - CONTUSION [None]
  - DECREASED APPETITE [None]
  - DIZZINESS [None]
  - ECZEMA [None]
  - FATIGUE [None]
  - MALAISE [None]
  - PRURITUS [None]
  - PURPURA [None]
